FAERS Safety Report 21467163 (Version 1)
Quarter: 2022Q4

REPORT INFORMATION
  Report Type: Spontaneous
  Country: RO (occurrence: None)
  Receive Date: 20221017
  Receipt Date: 20221017
  Transmission Date: 20230112
  Serious: Yes (Other)
  Sender: FDA-Public Use
  Company Number: 2022A346206

PATIENT
  Age: 69 Year
  Sex: Male

DRUGS (1)
  1. TAGRISSO [Suspect]
     Active Substance: OSIMERTINIB
     Indication: Non-small cell lung cancer metastatic
     Route: 048
     Dates: start: 202002

REACTIONS (4)
  - Malignant neoplasm progression [Recovering/Resolving]
  - Lymphadenopathy mediastinal [Unknown]
  - Pleurisy [Unknown]
  - Haemangioma [Unknown]

NARRATIVE: CASE EVENT DATE: 20210401
